FAERS Safety Report 16941203 (Version 1)
Quarter: 2019Q4

REPORT INFORMATION
  Report Type: Spontaneous
  Country: PH (occurrence: PH)
  Receive Date: 20191019
  Receipt Date: 20191019
  Transmission Date: 20200122
  Serious: Yes (Death)
  Sender: FDA-Public Use
  Company Number: None

PATIENT
  Age: 69 Year
  Sex: Male
  Weight: 78 kg

DRUGS (1)
  1. INVOKANA [Suspect]
     Active Substance: CANAGLIFLOZIN
     Indication: CARDIAC FAILURE

REACTIONS (6)
  - Hypotension [None]
  - Dysstasia [None]
  - Cardiogenic shock [None]
  - Liver injury [None]
  - Renal injury [None]
  - Malaise [None]

NARRATIVE: CASE EVENT DATE: 20191001
